FAERS Safety Report 6028113-1 (Version None)
Quarter: 2008Q4

REPORT INFORMATION
  Report Type: 
  Country: None (occurrence: None)
  Receive Date: 20081231
  Receipt Date: 20081231
  Transmission Date: 20090506
  Serious: No
  Sender: FDA-Public Use
  Company Number: None

PATIENT
  Age: 13 Year
  Sex: Male

DRUGS (8)
  1. SEROQUEL [Suspect]
     Indication: MAJOR DEPRESSION
     Dosage: 50 MG AND 250 MG DAILY AND QHS PO
     Route: 048
     Dates: start: 20080423, end: 20080425
  2. EFFEXOR XR [Suspect]
     Indication: MAJOR DEPRESSION
     Dosage: 300 MG QAM PO
     Route: 048
     Dates: start: 20080423, end: 20080425
  3. DIPHENHYDRAMINE HCL [Concomitant]
  4. IBUPROFEN TABLETS [Concomitant]
  5. MAGNESIUM GLUCONATE [Concomitant]
  6. MELATONIN [Concomitant]
  7. RIBOFLAVIN TAB [Concomitant]
  8. RIZATRIPTEN [Concomitant]

REACTIONS (3)
  - DYSURIA [None]
  - PENILE SWELLING [None]
  - PRIAPISM [None]
